FAERS Safety Report 4747253-8 (Version None)
Quarter: 2005Q3

REPORT INFORMATION
  Report Type: 
  Country: None (occurrence: None)
  Receive Date: 20050816
  Receipt Date: 20050803
  Transmission Date: 20060218
  Serious: Yes (Death, Other)
  Sender: FDA-Public Use
  Company Number: 2004093246

PATIENT
  Age: 70 Year
  Sex: Male

DRUGS (11)
  1. NEURONTIN [Suspect]
     Indication: PAIN
     Dosage: ORAL
     Route: 048
  2. LEVAQUIN [Concomitant]
  3. METRONIDAZOLE [Concomitant]
  4. ZESTRIL [Concomitant]
  5. CASODEX [Concomitant]
  6. OXYCODONE HCL [Concomitant]
  7. PROTONIX [Concomitant]
  8. ACIPHEX [Concomitant]
  9. OXYCONTIN [Concomitant]
  10. K-DUR 10 [Concomitant]
  11. ANTIBIOTICS (ANTIBIOTICS) [Concomitant]

REACTIONS (7)
  - BURNING SENSATION [None]
  - COMPLETED SUICIDE [None]
  - GUN SHOT WOUND [None]
  - INSOMNIA [None]
  - PERINEAL PAIN [None]
  - PSYCHOMOTOR HYPERACTIVITY [None]
  - SENSORY DISTURBANCE [None]
